FAERS Safety Report 7819062-4 (Version None)
Quarter: 2011Q4

REPORT INFORMATION
  Report Type: 
  Country: None (occurrence: None)
  Receive Date: 20111018
  Receipt Date: 20111005
  Transmission Date: 20120403
  Serious: Yes (Other)
  Sender: FDA-Public Use
  Company Number: JP-UCBSA-025790

PATIENT
  Age: 30 Year
  Sex: Female

DRUGS (8)
  1. LAMICTAL [Concomitant]
     Dosage: 400 MG PER DAY
     Route: 048
     Dates: start: 20091112
  2. MAGNESIUM OXIDE [Concomitant]
     Route: 048
  3. VEGETAMIN A [Concomitant]
     Dosage: 1 DF DAILY
     Route: 048
     Dates: start: 20101102, end: 20110103
  4. KEPPRA [Suspect]
     Indication: ENCEPHALITIS
     Route: 048
     Dates: start: 20101214
  5. IMPROMEN [Concomitant]
     Dosage: 3 MG PER DAY
     Route: 048
     Dates: start: 20101116, end: 20110103
  6. KEPPRA [Suspect]
     Indication: EPILEPSY
     Route: 048
     Dates: start: 20101214
  7. PRIMIDONE [Concomitant]
     Dosage: 1.2 G PER DAY
     Route: 048
     Dates: start: 20100420
  8. MAGNESIUM SULFATE [Concomitant]
     Indication: CONSTIPATION
     Dosage: 1000 MG PER DAY
     Route: 048
     Dates: start: 20101214

REACTIONS (2)
  - ABORTION INDUCED [None]
  - MATERNAL EXPOSURE DURING PREGNANCY [None]
